FAERS Safety Report 12130036 (Version 1)
Quarter: 2016Q1

REPORT INFORMATION
  Report Type: Other
  Country: US (occurrence: US)
  Receive Date: 20160229
  Receipt Date: 20160229
  Transmission Date: 20160526
  Serious: No
  Sender: FDA-Public Use
  Company Number: US-ACORDA-ACO_21605_2011

PATIENT
  Age: 58 Year
  Sex: Male
  Weight: 139.23 kg

DRUGS (3)
  1. VIAGRA [Concomitant]
     Active Substance: SILDENAFIL CITRATE
     Dosage: UNK
  2. TYSABRI [Concomitant]
     Active Substance: NATALIZUMAB
     Dosage: UNK
     Route: 042
  3. AMPYRA [Suspect]
     Active Substance: DALFAMPRIDINE
     Indication: GAIT DISTURBANCE
     Dosage: 10 MG TWICE DAILY
     Route: 048
     Dates: start: 20101224, end: 201101

REACTIONS (5)
  - Muscle spasms [Recovered/Resolved]
  - Unevaluable event [Recovered/Resolved]
  - Diarrhoea [Not Recovered/Not Resolved]
  - Dizziness [Unknown]
  - Nausea [Unknown]

NARRATIVE: CASE EVENT DATE: 201012
